FAERS Safety Report 13083481 (Version 3)
Quarter: 2017Q1

REPORT INFORMATION
  Report Type: Spontaneous
  Country: IT (occurrence: IT)
  Receive Date: 20170104
  Receipt Date: 20170104
  Transmission Date: 20170428
  Serious: Yes (Hospitalization, Other)
  Sender: FDA-Public Use
  Company Number: IT-BRISTOL-MYERS SQUIBB COMPANY-BMS-2016-111016

PATIENT
  Sex: Male

DRUGS (1)
  1. OPDIVO [Suspect]
     Active Substance: NIVOLUMAB
     Indication: BRAIN NEOPLASM
     Route: 065

REACTIONS (6)
  - Infection [Unknown]
  - Fatigue [Unknown]
  - Cardiac failure congestive [Unknown]
  - Respiratory tract congestion [Unknown]
  - Product use issue [Unknown]
  - Cough [Unknown]
